FAERS Safety Report 20085147 (Version 1)
Quarter: 2021Q4

REPORT INFORMATION
  Report Type: Spontaneous
  Country: FR (occurrence: FR)
  Receive Date: 20211118
  Receipt Date: 20211118
  Transmission Date: 20220303
  Serious: Yes (Life-Threatening, Other)
  Sender: FDA-Public Use
  Company Number: None

PATIENT
  Age: 16 Year
  Sex: Female

DRUGS (4)
  1. CLOZAPINE [Suspect]
     Active Substance: CLOZAPINE
     Indication: Psychotic disorder
     Dosage: 500 MG LE MATIN ET 200 MG LE SOIR
     Route: 048
     Dates: start: 20210715
  2. TROPATEPINE HYDROCHLORIDE [Suspect]
     Active Substance: TROPATEPINE HYDROCHLORIDE
     Indication: Psychotic disorder
     Dosage: 10 MILLIGRAM, QD (10 MG/J)
     Route: 048
     Dates: start: 2019
  3. LOXAPINE [Suspect]
     Active Substance: LOXAPINE
     Indication: Psychotic disorder
     Dosage: 25 MG LE MATIN ET 50 MG LE SOIR
     Route: 048
     Dates: start: 2019
  4. OXAZEPAM [Suspect]
     Active Substance: OXAZEPAM
     Indication: Psychotic disorder
     Dosage: 25 MG LE MATIN, 50 MG LE MIDI ET 50 MG LE SOIR
     Route: 048
     Dates: start: 2019

REACTIONS (1)
  - Intestinal pseudo-obstruction [Recovered/Resolved with Sequelae]

NARRATIVE: CASE EVENT DATE: 20210824
